FAERS Safety Report 22066760 (Version 1)
Quarter: 2023Q1

REPORT INFORMATION
  Report Type: Report from Study
  Country: US (occurrence: US)
  Receive Date: 20230306
  Receipt Date: 20230306
  Transmission Date: 20230418
  Serious: Yes (Other)
  Sender: FDA-Public Use
  Company Number: US-GILEAD-2023-0619202

PATIENT
  Sex: Female

DRUGS (1)
  1. SACITUZUMAB GOVITECAN-HZIY [Suspect]
     Active Substance: SACITUZUMAB GOVITECAN-HZIY
     Indication: Product used for unknown indication
     Dosage: RECONSTITUTE AND INFUSE 540MG IV ONCE WEEKLY ON DAY 1 AND 8 OF A CONTINUOUS 21 DAY TREATMENT CYCLE
     Route: 042

REACTIONS (1)
  - Disease progression [Unknown]
